FAERS Safety Report 7793718-4 (Version None)
Quarter: 2011Q4

REPORT INFORMATION
  Report Type: 
  Country: None (occurrence: None)
  Receive Date: 20111003
  Receipt Date: 20110923
  Transmission Date: 20120403
  Serious: Yes (Other)
  Sender: FDA-Public Use
  Company Number: US-SANOFI-AVENTIS-2011SA062724

PATIENT
  Age: 86 Year
  Sex: Male

DRUGS (2)
  1. SOLOSTAR [Suspect]
  2. LANTUS [Suspect]
     Dosage: DOSE:25 UNIT(S)
     Route: 058

REACTIONS (5)
  - FALL [None]
  - BLOOD GLUCOSE INCREASED [None]
  - DEMENTIA [None]
  - PRODUCT QUALITY ISSUE [None]
  - SKIN ULCER [None]
